FAERS Safety Report 5863627-6 (Version None)
Quarter: 2008Q3

REPORT INFORMATION
  Report Type: 
  Country: None (occurrence: None)
  Receive Date: 20080828
  Receipt Date: 20080819
  Transmission Date: 20090109
  Serious: Yes (Other)
  Sender: FDA-Public Use
  Company Number: US-PFIZER INC-2008045567

PATIENT
  Sex: Female
  Weight: 71.2 kg

DRUGS (5)
  1. CHANTIX [Suspect]
     Indication: SMOKING CESSATION THERAPY
     Dates: start: 20080501, end: 20080523
  2. PREDNISONE TAB [Suspect]
  3. AMLODIPINE [Concomitant]
  4. LEVOXYL [Concomitant]
  5. ACETYLSALICYLIC ACID SRT [Concomitant]

REACTIONS (6)
  - BLOOD GLUCOSE INCREASED [None]
  - CHEST PAIN [None]
  - NERVOUSNESS [None]
  - RASH [None]
  - SLEEP DISORDER [None]
  - UNEVALUABLE EVENT [None]
